FAERS Safety Report 10311509 (Version 1)
Quarter: 2014Q3

REPORT INFORMATION
  Report Type: Spontaneous
  Country: CH (occurrence: None)
  Receive Date: 20140715
  Receipt Date: 20140715
  Transmission Date: 20150326
  Serious: Yes (Hospitalization)
  Sender: FDA-Public Use
  Company Number: 20140411

PATIENT
  Age: 16 Year
  Sex: Female
  Weight: 53 kg

DRUGS (2)
  1. VENOFER [Suspect]
     Active Substance: IRON SUCROSE
     Indication: IRON DEFICIENCY ANAEMIA
     Dosage: 100 MG AND THEN 400 MG INTRAVENOUS DRIP
     Route: 041
     Dates: start: 19991124, end: 19991125
  2. FERRO-GRADUMENT (FERROUS SULPHATE) [Concomitant]

REACTIONS (6)
  - Overdose [None]
  - Hypotension [None]
  - Incorrect drug administration rate [None]
  - Pleuritic pain [None]
  - Rash [None]
  - Dyspnoea [None]

NARRATIVE: CASE EVENT DATE: 19991125
